FAERS Safety Report 7988844-0 (Version None)
Quarter: 2011Q4

REPORT INFORMATION
  Report Type: 
  Country: None (occurrence: None)
  Receive Date: 20111219
  Receipt Date: 20111210
  Transmission Date: 20120403
  Serious: Yes (Other)
  Sender: FDA-Public Use
  Company Number: US-SHIRE-ALL1-2011-04879

PATIENT
  Age: 20 Year
  Sex: Female

DRUGS (3)
  1. VYVANSE [Suspect]
     Dosage: 40 MG, 1X/DAY:QD
     Route: 048
     Dates: start: 20110101
  2. VYVANSE [Suspect]
     Indication: PRODUCT USED FOR UNKNOWN INDICATION
     Dosage: 40 MG, 1X/DAY:QD
     Route: 048
     Dates: start: 20110101, end: 20110101
  3. FOCALIN [Suspect]
     Indication: PRODUCT USED FOR UNKNOWN INDICATION
     Dosage: 5 MG, AS REQ'D
     Route: 065
     Dates: start: 20110101

REACTIONS (4)
  - DYSARTHRIA [None]
  - COORDINATION ABNORMAL [None]
  - CONDITION AGGRAVATED [None]
  - DYSPHAGIA [None]
